FAERS Safety Report 7433990-3 (Version None)
Quarter: 2011Q2

REPORT INFORMATION
  Report Type: 
  Country: None (occurrence: None)
  Receive Date: 20110420
  Receipt Date: 20110420
  Transmission Date: 20111010
  Serious: Yes (Other)
  Sender: FDA-Public Use
  Company Number: None

PATIENT
  Age: 58 Year
  Sex: Female
  Weight: 45.3597 kg

DRUGS (1)
  1. VERAMYST [Suspect]
     Indication: MULTIPLE ALLERGIES
     Dosage: 2 SPRAYS 2 X DAY NASAL
     Route: 045
     Dates: start: 20110402, end: 20110417

REACTIONS (1)
  - ORAL FUNGAL INFECTION [None]
